FAERS Safety Report 25219730 (Version 1)
Quarter: 2025Q2

REPORT INFORMATION
  Report Type: Spontaneous
  Country: PL (occurrence: PL)
  Receive Date: 20250421
  Receipt Date: 20250421
  Transmission Date: 20250716
  Serious: Yes (Other)
  Sender: ACCORD
  Company Number: None

PATIENT
  Age: 48 Year
  Sex: Female

DRUGS (7)
  1. LETROZOLE [Suspect]
     Active Substance: LETROZOLE
     Indication: Product used for unknown indication
     Dates: start: 20230601
  2. ZOLEDRONIC ACID [Suspect]
     Active Substance: ZOLEDRONIC ACID
     Indication: Adjuvant therapy
  3. PREGABALIN [Suspect]
     Active Substance: PREGABALIN
     Indication: Pain
  4. RIBOCICLIB [Suspect]
     Active Substance: RIBOCICLIB
     Indication: Product used for unknown indication
     Dosage: 600 MG, QD (3X200 MG), DAYS 1-21, EVERY 28 DAYS
     Dates: start: 20230601
  5. DULOXETINE [Concomitant]
     Active Substance: DULOXETINE
     Indication: Anxiety
  6. DENOSUMAB [Concomitant]
     Active Substance: DENOSUMAB
     Indication: Adjuvant therapy
  7. BUPRENORPHINE [Concomitant]
     Active Substance: BUPRENORPHINE
     Indication: Pain

REACTIONS (4)
  - Neutropenia [Recovering/Resolving]
  - Thrombocytopenia [Unknown]
  - Upper respiratory tract infection [Unknown]
  - Herpes virus infection [Unknown]

NARRATIVE: CASE EVENT DATE: 20230901
